FAERS Safety Report 7346914-4 (Version None)
Quarter: 2011Q1

REPORT INFORMATION
  Report Type: 
  Country: None (occurrence: None)
  Receive Date: 20110311
  Receipt Date: 20110301
  Transmission Date: 20110831
  Serious: No
  Sender: FDA-Public Use
  Company Number: US-JNJFOC-20110301656

PATIENT
  Sex: Female
  Weight: 80.29 kg

DRUGS (10)
  1. SAPHRIS [Concomitant]
     Dosage: HOUR OF SLEEP
     Route: 065
  2. FERROUS SULFATE TAB [Concomitant]
     Dosage: AM
     Route: 065
  3. PEG [Concomitant]
     Dosage: AM
     Route: 065
  4. LORAZEPAM [Concomitant]
     Dosage: 2MG HOUR OF SLEEP, 0.5MG 8 AM AND 1 PM
     Route: 065
  5. INVEGA SUSTENNA [Suspect]
     Indication: BIPOLAR DISORDER
     Route: 030
  6. OMEPRAZOLE [Concomitant]
     Dosage: AM
     Route: 065
  7. BENZTROPINE MESYLATE [Concomitant]
     Route: 065
  8. DOCUSATE SODIUM [Concomitant]
     Dosage: HS
     Route: 065
  9. SENNA [Concomitant]
     Dosage: AM
     Route: 065
  10. TRAZODONE HCL [Concomitant]
     Dosage: HOUR OF SLEEP
     Route: 065

REACTIONS (3)
  - BLISTER [None]
  - INJECTION SITE REACTION [None]
  - INFLAMMATION [None]
